FAERS Safety Report 6535343-9 (Version None)
Quarter: 2010Q1

REPORT INFORMATION
  Report Type: 
  Country: None (occurrence: None)
  Receive Date: 20100113
  Receipt Date: 20100104
  Transmission Date: 20100710
  Serious: Yes (Other)
  Sender: FDA-Public Use
  Company Number: AU-JNJFOC-20100100577

PATIENT
  Sex: Female

DRUGS (4)
  1. RISPERDAL [Suspect]
     Indication: AGGRESSION
     Route: 065
  2. RISPERDAL [Suspect]
     Route: 065
  3. ASPIRIN [Concomitant]
     Dosage: HALF, A DAY
     Route: 065
  4. BLOOD PRESSURE MEDICATION NOS [Concomitant]
     Indication: BLOOD PRESSURE ABNORMAL
     Route: 065

REACTIONS (7)
  - ABASIA [None]
  - BLINDNESS [None]
  - DIZZINESS [None]
  - DRY SKIN [None]
  - FALL [None]
  - FATIGUE [None]
  - FLUID INTAKE REDUCED [None]
